FAERS Safety Report 8536020-5 (Version None)
Quarter: 2012Q3

REPORT INFORMATION
  Report Type: 
  Country: None (occurrence: None)
  Receive Date: 20120725
  Receipt Date: 20120716
  Transmission Date: 20120928
  Serious: Yes (Disabling)
  Sender: FDA-Public Use
  Company Number: GB-NOVOPROD-356057

PATIENT
  Age: 44 Year
  Sex: Female
  Weight: 146 kg

DRUGS (8)
  1. LANSOPRAZOLE [Concomitant]
  2. DEPO-PROVERA [Concomitant]
     Indication: CONTRACEPTION
     Route: 058
  3. VICTOZA [Suspect]
     Indication: PRODUCT USED FOR UNKNOWN INDICATION
     Dosage: 1.2 MG, QD
     Route: 058
     Dates: start: 20120322
  4. BETAHISTINE [Concomitant]
  5. LISINOPRIL [Concomitant]
  6. NOVOMIX 30 [Concomitant]
     Route: 058
  7. SIMVASTATIN [Concomitant]
  8. AMITRIPTYLINE HYDROCHLORIDE [Concomitant]

REACTIONS (1)
  - VAGINAL HAEMORRHAGE [None]
